FAERS Safety Report 4945135-X (Version None)
Quarter: 2006Q1

REPORT INFORMATION
  Report Type: 
  Country: None (occurrence: None)
  Receive Date: 20060314
  Receipt Date: 20060314
  Transmission Date: 20060701
  Serious: No
  Sender: FDA-Public Use
  Company Number: None

PATIENT
  Age: 23 Year
  Sex: Female

DRUGS (8)
  1. TETRACYCLINE [Suspect]
     Dates: start: 20051001, end: 20051001
  2. BACTRIM [Suspect]
     Dates: start: 20051001, end: 20051001
  3. NEURONTIN [Concomitant]
  4. CYMBALTA [Concomitant]
  5. MS CONTIN [Concomitant]
  6. PARAFON FORTE [Concomitant]
  7. TETRACYCLINE [Concomitant]
  8. BACTRIM [Concomitant]

REACTIONS (8)
  - AMMONIA INCREASED [None]
  - DYSPNOEA [None]
  - ENCEPHALOPATHY [None]
  - HEPATIC FAILURE [None]
  - NIGHT SWEATS [None]
  - OEDEMA [None]
  - PRODUCTIVE COUGH [None]
  - RASH [None]
